FAERS Safety Report 16208061 (Version 3)
Quarter: 2019Q2

REPORT INFORMATION
  Report Type: Spontaneous
  Country: US (occurrence: US)
  Receive Date: 20190417
  Receipt Date: 20190625
  Transmission Date: 20190711
  Serious: Yes (Other)
  Sender: FDA-Public Use
  Company Number: US-PFIZER INC-2019084514

PATIENT
  Age: 61 Year
  Sex: Female

DRUGS (24)
  1. PANTOPRAZOLE [Suspect]
     Active Substance: PANTOPRAZOLE
     Dosage: UNK
  2. PREVACID 24 HR [Suspect]
     Active Substance: LANSOPRAZOLE
     Indication: GASTROOESOPHAGEAL REFLUX DISEASE
     Dosage: 15 MG, DAILY
     Dates: start: 2009, end: 2017
  3. CYCLOBENZAPRINE. [Concomitant]
     Active Substance: CYCLOBENZAPRINE
     Dosage: UNK
  4. PEPCID [Concomitant]
     Active Substance: FAMOTIDINE
     Indication: GASTROOESOPHAGEAL REFLUX DISEASE
     Dosage: UNK (LAST 15 YEARS)
  5. NEXIUM [Suspect]
     Active Substance: ESOMEPRAZOLE MAGNESIUM
     Indication: GASTROOESOPHAGEAL REFLUX DISEASE
     Dosage: 40 MG, DAILY
     Dates: start: 2001, end: 2017
  6. PRILOSEC OTC [Suspect]
     Active Substance: OMEPRAZOLE MAGNESIUM
     Indication: GASTROOESOPHAGEAL REFLUX DISEASE
     Dosage: 20 MG, DAILY
     Dates: start: 2003, end: 2017
  7. TRAMADOL. [Concomitant]
     Active Substance: TRAMADOL
     Dosage: UNK
  8. PEPCID AC [Concomitant]
     Active Substance: FAMOTIDINE
     Dosage: UNK
  9. TAGAMET HB (OTC) [Concomitant]
     Dosage: UNK
  10. TUMS [Concomitant]
     Active Substance: CALCIUM CARBONATE
     Indication: GASTROOESOPHAGEAL REFLUX DISEASE
     Dosage: UNK, (LAST 15 YEARS)
  11. ESOMEPRAZOLE. [Suspect]
     Active Substance: ESOMEPRAZOLE MAGNESIUM
     Dosage: UNK
  12. FLUOXETINE [Concomitant]
     Active Substance: FLUOXETINE HYDROCHLORIDE
     Dosage: UNK
  13. ZANTAC 150 (OTC) [Concomitant]
     Dosage: UNK
  14. ZANTAC 75 (OTC) [Concomitant]
     Dosage: UNK
  15. PREVACID [Suspect]
     Active Substance: LANSOPRAZOLE
     Indication: GASTROOESOPHAGEAL REFLUX DISEASE
     Dosage: 40 MG, DAILY
     Dates: start: 2000, end: 2017
  16. GABENTIN [Concomitant]
     Active Substance: GABAPENTIN
     Dosage: UNK
  17. LEVOTHYROXIN [Concomitant]
     Active Substance: LEVOTHYROXINE
     Dosage: UNK
  18. NEXIUM 24HR [Suspect]
     Active Substance: ESOMEPRAZOLE MAGNESIUM
     Indication: GASTROOESOPHAGEAL REFLUX DISEASE
     Dosage: 20 MG, DAILY
     Dates: start: 2014, end: 2017
  19. LANSOPRAZOLE. [Suspect]
     Active Substance: LANSOPRAZOLE
     Dosage: UNK
  20. PROTONIX [Suspect]
     Active Substance: PANTOPRAZOLE SODIUM
     Dosage: UNK
  21. OMEPRAZOLE. [Suspect]
     Active Substance: OMEPRAZOLE
     Dosage: UNK
  22. ZANTAC [Concomitant]
     Active Substance: RANITIDINE HYDROCHLORIDE
     Indication: GASTROOESOPHAGEAL REFLUX DISEASE
     Dosage: UNK, (LAST 15 YEARS)
  23. PEPCID COMPLETE [Concomitant]
     Active Substance: CALCIUM CARBONATE\FAMOTIDINE\MAGNESIUM HYDROXIDE
     Dosage: UNK
  24. PRILOSEC [Suspect]
     Active Substance: OMEPRAZOLE MAGNESIUM
     Indication: GASTROOESOPHAGEAL REFLUX DISEASE
     Dosage: 40 MG, DAILY
     Dates: start: 2000, end: 2017

REACTIONS (1)
  - Chronic kidney disease [Not Recovered/Not Resolved]

NARRATIVE: CASE EVENT DATE: 2015
